FAERS Safety Report 6224940-6 (Version None)
Quarter: 2009Q2

REPORT INFORMATION
  Report Type: 
  Country: None (occurrence: None)
  Receive Date: 20090612
  Receipt Date: 20090331
  Transmission Date: 20091009
  Serious: No
  Sender: FDA-Public Use
  Company Number: US-ABBOTT-09P-163-0565971-00

PATIENT
  Sex: Female
  Weight: 80.812 kg

DRUGS (13)
  1. HUMIRA [Suspect]
     Indication: RHEUMATOID ARTHRITIS
     Route: 058
     Dates: start: 20080101, end: 20080101
  2. HUMIRA [Suspect]
     Dosage: HUMIRA PEN
     Dates: start: 20090315
  3. ACTOS [Concomitant]
     Indication: DIABETES MELLITUS
  4. LANTUS [Concomitant]
     Indication: DIABETES MELLITUS
  5. METFORMIN HYDROCHLORIDE [Concomitant]
     Indication: DIABETES MELLITUS
  6. TOPAMAX [Concomitant]
     Indication: INFLAMMATION
  7. LORAZEPAM [Concomitant]
     Indication: ANXIOLYTIC THERAPY
  8. PROTONIX [Concomitant]
     Indication: GASTROOESOPHAGEAL REFLUX DISEASE
  9. VITAMIN D [Concomitant]
     Indication: CALCIUM DEFICIENCY
  10. OXYCONTIN [Concomitant]
     Indication: PAIN MANAGEMENT
  11. FORTEO [Concomitant]
     Indication: OSTEOPOROSIS
     Dosage: 30
  12. MOBIC [Concomitant]
     Indication: MUSCLE RELAXANT THERAPY
  13. CYMBALTA [Concomitant]
     Indication: ANXIOLYTIC THERAPY

REACTIONS (2)
  - INJECTION SITE HAEMATOMA [None]
  - RHEUMATOID ARTHRITIS [None]
